FAERS Safety Report 13424301 (Version 1)
Quarter: 2017Q2

REPORT INFORMATION
  Report Type: Spontaneous
  Country: DE (occurrence: DE)
  Receive Date: 20170410
  Receipt Date: 20170410
  Transmission Date: 20170830
  Serious: Yes (Other)
  Sender: FDA-Public Use
  Company Number: DE-JNJFOC-20170407941

PATIENT
  Sex: Female
  Weight: 54 kg

DRUGS (5)
  1. NORTRILEN [Concomitant]
     Active Substance: NORTRIPTYLINE
     Indication: LETHARGY
     Route: 065
  2. OXYCODONE [Concomitant]
     Active Substance: OXYCODONE
     Indication: PAIN
     Route: 065
  3. TRAMAL [Suspect]
     Active Substance: TRAMADOL
     Indication: PAIN
     Route: 065
  4. DIPHENHYDRAMINE HYDROCHLORIDE. [Concomitant]
     Active Substance: DIPHENHYDRAMINE HYDROCHLORIDE
     Indication: INSOMNIA
     Route: 065
  5. IBUPROFEN. [Concomitant]
     Active Substance: IBUPROFEN
     Indication: PAIN
     Route: 065

REACTIONS (10)
  - Personality disorder [Unknown]
  - Decreased appetite [Unknown]
  - Cerebral thrombosis [Unknown]
  - Drug use disorder [Unknown]
  - Loss of libido [Unknown]
  - Epilepsy [Unknown]
  - Emotional disorder [Unknown]
  - Lethargy [Unknown]
  - Depression [Unknown]
  - Insomnia [Unknown]
